FAERS Safety Report 7782552-7 (Version None)
Quarter: 2011Q3

REPORT INFORMATION
  Report Type: 
  Country: None (occurrence: None)
  Receive Date: 20110928
  Receipt Date: 20110915
  Transmission Date: 20111222
  Serious: Yes (Other)
  Sender: FDA-Public Use
  Company Number: US-ELI_LILLY_AND_COMPANY-US201109005290

PATIENT
  Sex: Female

DRUGS (1)
  1. HUMATROPE [Suspect]
     Dosage: 0.5 MG, QD
     Route: 058

REACTIONS (4)
  - URINARY TRACT INFECTION [None]
  - PANCREATITIS [None]
  - CHOLELITHIASIS [None]
  - GALLBLADDER OPERATION [None]
